FAERS Safety Report 23330438 (Version 1)
Quarter: 2023Q4

REPORT INFORMATION
  Report Type: Spontaneous
  Country: US (occurrence: US)
  Receive Date: 20231222
  Receipt Date: 20231222
  Transmission Date: 20240110
  Serious: No
  Sender: FDA-Public Use
  Company Number: MIQ-01032023-82

PATIENT
  Age: 73 Year
  Weight: 117.91 kg

DRUGS (10)
  1. IVERMECTIN [Suspect]
     Active Substance: IVERMECTIN
     Indication: Psoriasis
     Dosage: 7 3 MG TABLETS, MONTHLY
     Route: 048
     Dates: start: 202007, end: 20220701
  2. IVERMECTIN [Suspect]
     Active Substance: IVERMECTIN
     Indication: Product used for unknown indication
     Dosage: 7 3 MG TABLETS, SINGLE
     Route: 048
     Dates: start: 20221015, end: 20221015
  3. IVERMECTIN [Suspect]
     Active Substance: IVERMECTIN
     Dosage: 7 3 MG TABLETS, SINGLE
     Route: 048
     Dates: start: 202211, end: 202211
  4. IVERMECTIN [Suspect]
     Active Substance: IVERMECTIN
     Dosage: 7 3 MG TABLETS, SINGLE
     Route: 048
     Dates: start: 20221201, end: 20221201
  5. IVERMECTIN [Suspect]
     Active Substance: IVERMECTIN
     Dosage: 7 3 MG TABLETS, SINGLE
     Route: 048
     Dates: start: 20230101, end: 20230101
  6. Flonase nose spray [Concomitant]
     Indication: Product used for unknown indication
     Dosage: 27.5 MCG PER SPRAY, FOUR SPRAYS A DAY BEFORE GOING TO BED
     Route: 045
  7. FLUTICASONE PROPIONATE [Concomitant]
     Active Substance: FLUTICASONE PROPIONATE
     Indication: Psoriasis
     Dosage: 0.05 %, AS NEEDED
     Route: 061
     Dates: end: 2020
  8. FLUTICASONE PROPIONATE [Concomitant]
     Active Substance: FLUTICASONE PROPIONATE
     Dosage: 0.05 %, AS NEEDED
     Route: 061
     Dates: start: 202209
  9. BETAMETHASONE DIPROPIONATE [Concomitant]
     Active Substance: BETAMETHASONE DIPROPIONATE
     Indication: Psoriasis
     Dosage: 0.05 %, AS NEEDED
     Route: 061
     Dates: end: 2020
  10. BETAMETHASONE DIPROPIONATE [Concomitant]
     Active Substance: BETAMETHASONE DIPROPIONATE
     Dosage: 0.05 %, AS NEEDED
     Route: 061
     Dates: start: 202209

REACTIONS (2)
  - Therapeutic response unexpected [Unknown]
  - Intentional product misuse [Unknown]

NARRATIVE: CASE EVENT DATE: 20200101
